FAERS Safety Report 5701823-9 (Version None)
Quarter: 2008Q2

REPORT INFORMATION
  Report Type: 
  Country: None (occurrence: None)
  Receive Date: 20080408
  Receipt Date: 20080226
  Transmission Date: 20081010
  Serious: Yes (Life-Threatening)
  Sender: FDA-Public Use
  Company Number: 2008AL002044

PATIENT
  Age: 30 Year
  Sex: Female

DRUGS (4)
  1. CITALOPRAM HYDROBROMIDE [Suspect]
     Indication: DEPRESSION
     Dosage: 20 MG; QD
     Dates: start: 20060601, end: 20071221
  2. CARBAMAZEPINE [Suspect]
     Indication: EPILEPSY
     Dosage: 2.5 MG; BID
     Dates: start: 20070809, end: 20071221
  3. INTERFERON BETA [Concomitant]
  4. DANTROLENE SODIUM [Concomitant]

REACTIONS (2)
  - APLASTIC ANAEMIA [None]
  - VAGINAL HAEMORRHAGE [None]
